FAERS Safety Report 8523814-5 (Version None)
Quarter: 2012Q3

REPORT INFORMATION
  Report Type: 
  Country: None (occurrence: None)
  Receive Date: 20120720
  Receipt Date: 20120716
  Transmission Date: 20120928
  Serious: Yes (Other)
  Sender: FDA-Public Use
  Company Number: DE-PFIZER INC-2012170832

PATIENT
  Age: 74 Year
  Sex: Female

DRUGS (1)
  1. ALPRAZOLAM [Suspect]
     Indication: DEPRESSION
     Dosage: 0.5 MG 3-4DF/DAY AS NEEDED
     Dates: start: 20020101

REACTIONS (4)
  - SLOW SPEECH [None]
  - ACCIDENT [None]
  - HYPERSOMNIA [None]
  - SLOW RESPONSE TO STIMULI [None]
